FAERS Safety Report 21629023 (Version 1)
Quarter: 2022Q4

REPORT INFORMATION
  Report Type: Spontaneous
  Country: US (occurrence: US)
  Receive Date: 20221122
  Receipt Date: 20221122
  Transmission Date: 20230113
  Serious: No
  Sender: FDA-Public Use
  Company Number: US-BAXTER-2022BAX025011

PATIENT
  Sex: Female

DRUGS (4)
  1. LACTATED RINGERS SOLUTION [Suspect]
     Active Substance: CALCIUM CHLORIDE\POTASSIUM CHLORIDE\SODIUM CHLORIDE\SODIUM LACTATE
     Indication: Fluid replacement
     Route: 042
  2. LACTATED RINGERS SOLUTION [Suspect]
     Active Substance: CALCIUM CHLORIDE\POTASSIUM CHLORIDE\SODIUM CHLORIDE\SODIUM LACTATE
     Indication: Hyperemesis gravidarum
  3. VITAMINS [Suspect]
     Active Substance: VITAMINS
     Indication: Hyperemesis gravidarum
     Route: 042
  4. VITAMINS [Suspect]
     Active Substance: VITAMINS
     Indication: Fluid replacement

REACTIONS (2)
  - Exposure during pregnancy [Unknown]
  - Hypersensitivity [Recovered/Resolved]
